FAERS Safety Report 24218050 (Version 2)
Quarter: 2024Q3

REPORT INFORMATION
  Report Type: Report from Study
  Country: US (occurrence: US)
  Receive Date: 20240816
  Receipt Date: 20240827
  Transmission Date: 20241016
  Serious: Yes (Other)
  Sender: SPRINGWORKS THERAPEUTIC
  Company Number: US-SPRINGWORKS THERAPEUTICS-SW-001678

PATIENT
  Age: 45 Year
  Sex: Female

DRUGS (5)
  1. NIROGACESTAT [Suspect]
     Active Substance: NIROGACESTAT
     Indication: Desmoid tumour
     Dosage: 150  MILLIGRAM, BID
     Dates: start: 20240401
  2. NIROGACESTAT [Suspect]
     Active Substance: NIROGACESTAT
     Dosage: 150 MILLIGRAM, BID
     Dates: start: 20240412
  3. NIROGACESTAT [Suspect]
     Active Substance: NIROGACESTAT
     Dosage: 50 MILLIGRAM
     Dates: end: 20240715
  4. AMOXICILLIN [Concomitant]
     Active Substance: AMOXICILLIN
     Indication: Product used for unknown indication
  5. DOXYCYCLINE [Concomitant]
     Active Substance: DOXYCYCLINE\DOXYCYCLINE HYCLATE
     Indication: Product used for unknown indication

REACTIONS (17)
  - Tumour ulceration [Unknown]
  - Malignant melanoma [Unknown]
  - Visual impairment [Unknown]
  - Skin lesion [Unknown]
  - Ovarian cyst [Unknown]
  - Chest pain [Unknown]
  - Pyrexia [Unknown]
  - Chills [Unknown]
  - Wound [Recovering/Resolving]
  - Night sweats [Not Recovered/Not Resolved]
  - Hot flush [Not Recovered/Not Resolved]
  - Menopause [Unknown]
  - Headache [Unknown]
  - Amenorrhoea [Unknown]
  - Ovarian dysfunction [Recovering/Resolving]
  - Blood phosphorus decreased [Recovering/Resolving]
  - Diarrhoea [Not Recovered/Not Resolved]

NARRATIVE: CASE EVENT DATE: 20240401
